FAERS Safety Report 7798601 (Version 3)
Quarter: 2012Q4

REPORT INFORMATION
  Report Type: 
  Country: DE (occurrence: GR)
  Receive Date: 20110203
  Receipt Date: 20120911
  Transmission Date: 20130627
  Serious: Yes (Other)
  Sender: FDA-Public Use
  Company Number: GR-BAYER-2010-000101

PATIENT
  Age: 5 Year
  Sex: Male

DRUGS (3)
  1. HELIXATE NEXGEN [Suspect]
     Indication: HAEMOPHILIA
     Dosage: Daily dose 90 ?g/kg
  2. HELIXATE NEXGEN [Suspect]
     Indication: HAEMOPHILIA
     Dosage: UNK
     Dates: end: 200712
  3. HELIXATE NEXGEN [Suspect]
     Indication: HAEMOPHILIA
     Dosage: UNK, TIW
     Dates: end: 200805

REACTIONS (2)
  - Anti factor VIII antibody positive [Unknown]
  - Haemarthrosis [Unknown]
